FAERS Safety Report 8448798-X (Version None)
Quarter: 2012Q2

REPORT INFORMATION
  Report Type: 
  Country: None (occurrence: None)
  Receive Date: 20120613
  Receipt Date: 20120528
  Transmission Date: 20120825
  Serious: Yes (Life-Threatening)
  Sender: FDA-Public Use
  Company Number: DSJ-2012-08295

PATIENT
  Age: 77 Year
  Sex: Female
  Weight: 57.5 kg

DRUGS (10)
  1. ROZEREM [Suspect]
     Indication: INSOMNIA
     Dosage: 8 MG (8 MG, 1 IN 1 D), PER ORAL
     Route: 048
     Dates: end: 20120505
  2. CARVEDILOL [Suspect]
     Indication: HYPERTENSION
     Dosage: 10 MG (10 MG, 1 IN 1 D), PER ORAL
     Route: 048
     Dates: end: 20120505
  3. LANSOPRAZOLE [Concomitant]
  4. OLMESARTAN MEDOXOMIL [Suspect]
     Indication: HYPERTENSION
     Dosage: 40 MG (40 MG, 1 IN 1 D), PER ORAL
     Route: 048
     Dates: end: 20120505
  5. NOXTAL (BROTIZOLAM) (TABLET) [Suspect]
     Indication: INSOMNIA
     Dosage: 8.5 MG 99.5 MG, 1 IN 1 D), PER ORAL
     Route: 048
     Dates: start: 20120505, end: 20120505
  6. ALLOPURINOL [Concomitant]
  7. ASPIRIN [Concomitant]
  8. ENALAPRIL MALEATE [Suspect]
     Indication: HYPERTENSION
     Dosage: 2.5 MG (2.5 MG, 1 IN 1 D), PER ORAL
     Route: 048
     Dates: end: 20120505
  9. AMOBAN (ZOPICLONE) (TABLET) [Suspect]
     Indication: HYPERTENSION
     Dosage: 7.5 MG (7.5 MG, 1 IN 1 D), PER ORAL
     Route: 048
     Dates: end: 20120505
  10. CONIEL (BENIDIPINE HYDROCHLORIDE) (TABLET) [Suspect]
     Indication: HYPERTENSION
     Dosage: 4 MG (4 MG, 1 IN 1 D), PER ORAL
     Route: 048
     Dates: end: 20120505

REACTIONS (19)
  - CARDIO-RESPIRATORY ARREST [None]
  - MIOSIS [None]
  - BODY TEMPERATURE DECREASED [None]
  - ARTERIOSCLEROSIS [None]
  - TREATMENT NONCOMPLIANCE [None]
  - OVERDOSE [None]
  - HYPOTENSION [None]
  - TOXICITY TO VARIOUS AGENTS [None]
  - UNRESPONSIVE TO STIMULI [None]
  - ACIDOSIS [None]
  - BRADYCARDIA [None]
  - PUPILLARY REFLEX IMPAIRED [None]
  - CONTINUOUS HAEMODIAFILTRATION [None]
  - RENAL ATROPHY [None]
  - OXYGEN SATURATION DECREASED [None]
  - CEREBRAL ATROPHY [None]
  - ALTERED STATE OF CONSCIOUSNESS [None]
  - FALL [None]
  - DISSEMINATED INTRAVASCULAR COAGULATION [None]
